FAERS Safety Report 5097713-8 (Version None)
Quarter: 2006Q3

REPORT INFORMATION
  Report Type: 
  Country: None (occurrence: None)
  Receive Date: 20060901
  Receipt Date: 20060814
  Transmission Date: 20061208
  Serious: Yes (Hospitalization, Other)
  Sender: FDA-Public Use
  Company Number: US200608002905

PATIENT
  Age: 54 Year
  Sex: Male
  Weight: 79.4 kg

DRUGS (1)
  1. ZYPREXA [Suspect]
     Dosage: 10  MG
     Dates: start: 19980101, end: 20040101

REACTIONS (4)
  - DIABETES MELLITUS [None]
  - DIABETIC KETOACIDOSIS [None]
  - LOCALISED INFECTION [None]
  - THROMBOSIS [None]
